FAERS Safety Report 7453665-4 (Version None)
Quarter: 2011Q2

REPORT INFORMATION
  Report Type: 
  Country: None (occurrence: None)
  Receive Date: 20110502
  Receipt Date: 20110105
  Transmission Date: 20111010
  Serious: Yes (Other)
  Sender: FDA-Public Use
  Company Number: US-ASTRAZENECA-2011SE00940

PATIENT
  Age: 69 Year
  Sex: Male
  Weight: 74.8 kg

DRUGS (3)
  1. NEXIUM [Suspect]
     Indication: PROPHYLAXIS AGAINST GASTROINTESTINAL ULCER
     Route: 048
     Dates: start: 20080101
  2. CRESTOR [Concomitant]
     Route: 048
  3. PLAVIX [Concomitant]

REACTIONS (1)
  - THROMBOCYTOPENIA [None]
